FAERS Safety Report 13637053 (Version 1)
Quarter: 2017Q2

REPORT INFORMATION
  Report Type: Spontaneous
  Country: FR (occurrence: FR)
  Receive Date: 20170609
  Receipt Date: 20170609
  Transmission Date: 20170830
  Serious: Yes (Hospitalization)
  Sender: FDA-Public Use
  Company Number: FR-TEVA-775457ROM

PATIENT
  Age: 49 Year
  Sex: Male

DRUGS (2)
  1. VINCRISTINE [Suspect]
     Active Substance: VINCRISTINE
     Indication: NEOPLASM MALIGNANT
     Dosage: 1.8 MG (1.0 MG/M2 )
     Route: 042
  2. RASBURICASE [Concomitant]
     Active Substance: RASBURICASE
     Indication: RENAL FAILURE
     Route: 065

REACTIONS (1)
  - Arteriospasm coronary [Recovered/Resolved]
